FAERS Safety Report 7472250-1 (Version None)
Quarter: 2011Q1

REPORT INFORMATION
  Report Type: 
  Country: None (occurrence: None)
  Receive Date: 20110302
  Receipt Date: 20100928
  Transmission Date: 20110831
  Serious: Yes (Death)
  Sender: FDA-Public Use
  Company Number: 163-21880-10081289

PATIENT
  Sex: Female

DRUGS (2)
  1. REVLIMID [Suspect]
     Indication: MULTIPLE MYELOMA
     Dosage: 10 MG, DAILY FOR 21 DAYS, PO, 25 MG, DAILY FOR 21 DAYS, PO
     Route: 048
     Dates: start: 20090101, end: 20090301
  2. REVLIMID [Suspect]
     Indication: MULTIPLE MYELOMA
     Dosage: 10 MG, DAILY FOR 21 DAYS, PO, 25 MG, DAILY FOR 21 DAYS, PO
     Route: 048
     Dates: start: 20100719, end: 20100101

REACTIONS (3)
  - PNEUMONIA [None]
  - MULTIPLE MYELOMA [None]
  - RESPIRATORY FAILURE [None]
